FAERS Safety Report 26070139 (Version 1)
Quarter: 2025Q4

REPORT INFORMATION
  Report Type: Spontaneous
  Country: US (occurrence: None)
  Receive Date: 20251119
  Receipt Date: 20251119
  Transmission Date: 20260119
  Serious: Yes (Life-Threatening, Hospitalization, Disabling)
  Sender: FDA-CTU
  Company Number: None

PATIENT
  Age: 37 Year
  Sex: Male

DRUGS (2)
  1. 7-HYDROXYMITRAGYNINE [Suspect]
     Active Substance: 7-HYDROXYMITRAGYNINE
     Indication: Anxiety
     Dates: start: 20250925
  2. MITRAGYNINE PSEUDOINDOXYL [Suspect]
     Active Substance: MITRAGYNINE PSEUDOINDOXYL

REACTIONS (9)
  - Substance use [None]
  - Drug abuser [None]
  - Agitation [None]
  - Insomnia [None]
  - Constipation [None]
  - Nausea [None]
  - Hypophagia [None]
  - Thinking abnormal [None]
  - Paranoia [None]

NARRATIVE: CASE EVENT DATE: 20250925
